FAERS Safety Report 9656977 (Version 3)
Quarter: 2014Q1

REPORT INFORMATION
  Report Type: Spontaneous
  Country: US (occurrence: US)
  Receive Date: 20131030
  Receipt Date: 20140129
  Transmission Date: 20141002
  Serious: No
  Sender: FDA-Public Use
  Company Number: US-PFIZER INC-2013307624

PATIENT
  Age: 83 Year
  Sex: Male

DRUGS (2)
  1. NIFEDIPINE [Suspect]
     Dosage: 30 MG, DAILY
     Route: 048
     Dates: start: 20130425, end: 2013
  2. NIFEDIPINE [Suspect]
     Dosage: 60 MG, DAILY
     Dates: start: 2013

REACTIONS (1)
  - Drug ineffective [Unknown]
